FAERS Safety Report 21811725 (Version 2)
Quarter: 2023Q1

REPORT INFORMATION
  Report Type: Spontaneous
  Country: US (occurrence: US)
  Receive Date: 20230103
  Receipt Date: 20230103
  Transmission Date: 20230417
  Serious: No
  Sender: FDA-Public Use
  Company Number: US-PFIZER INC-202201400187

PATIENT
  Age: 75 Year
  Sex: Female
  Weight: 81.646 kg

DRUGS (1)
  1. VYNDAMAX [Suspect]
     Active Substance: TAFAMIDIS
     Indication: Cardiac amyloidosis
     Dosage: 61 MG, DAILY
     Route: 048
     Dates: start: 202206

REACTIONS (3)
  - Arthritis [Not Recovered/Not Resolved]
  - Confusional state [Unknown]
  - Asthenia [Unknown]
